FAERS Safety Report 4311982-0 (Version None)
Quarter: 2004Q1

REPORT INFORMATION
  Report Type: 
  Country: None (occurrence: None)
  Receive Date: 20040305
  Receipt Date: 20030811
  Transmission Date: 20041129
  Serious: No
  Sender: FDA-Public Use
  Company Number: US-GLAXOSMITHKLINE-A0420579A

PATIENT
  Age: 84 Year
  Sex: Female

DRUGS (4)
  1. REQUIP [Suspect]
     Indication: PARKINSON'S DISEASE
     Dosage: 1TAB PER DAY
     Route: 048
  2. HORMONE REPLACEMENT [Concomitant]
  3. NITROGLYCERIN [Concomitant]
  4. VITAMINES [Concomitant]

REACTIONS (2)
  - DIZZINESS [None]
  - YAWNING [None]
